FAERS Safety Report 10196656 (Version 1)
Quarter: 2014Q2

REPORT INFORMATION
  Report Type: Spontaneous
  Country: US (occurrence: US)
  Receive Date: 20140527
  Receipt Date: 20140527
  Transmission Date: 20141212
  Serious: No
  Sender: FDA-Public Use
  Company Number: US-009507513-1405USA000132

PATIENT
  Age: 21 Year
  Sex: Female
  Weight: 95.69 kg

DRUGS (4)
  1. IMPLANON [Suspect]
     Indication: CONTRACEPTION
     Dosage: 68 MG, UNK
     Route: 059
     Dates: start: 201310
  2. WELLBUTRIN [Concomitant]
  3. LATUDA [Concomitant]
  4. PROVERA [Concomitant]
     Indication: MENSTRUATION IRREGULAR

REACTIONS (3)
  - Implant site pain [Not Recovered/Not Resolved]
  - Device dislocation [Not Recovered/Not Resolved]
  - Medical device complication [Not Recovered/Not Resolved]
